FAERS Safety Report 5724613-X (Version None)
Quarter: 2008Q2

REPORT INFORMATION
  Report Type: 
  Country: None (occurrence: None)
  Receive Date: 20080501
  Receipt Date: 20080417
  Transmission Date: 20081010
  Serious: Yes (Death, Other)
  Sender: FDA-Public Use
  Company Number: GB-BRISTOL-MYERS SQUIBB COMPANY-14088884

PATIENT
  Age: 45 Year
  Sex: Female

DRUGS (15)
  1. CYCLOPHOSPHAMIDE [Suspect]
     Indication: SYSTEMIC LUPUS ERYTHEMATOSUS
     Route: 048
     Dates: start: 19920101
  2. AZATHIOPRINE [Suspect]
     Indication: SYSTEMIC LUPUS ERYTHEMATOSUS
  3. RITUXIMAB [Suspect]
     Indication: SYSTEMIC LUPUS ERYTHEMATOSUS
     Dates: start: 20020901, end: 20051101
  4. PREDNISOLONE [Suspect]
     Indication: SYSTEMIC LUPUS ERYTHEMATOSUS
     Dates: start: 20020601, end: 20030601
  5. FOLIC ACID [Concomitant]
  6. AMLODIPINE [Concomitant]
     Dates: start: 20020601
  7. CALCICHEW D3 [Concomitant]
     Dates: start: 20030601
  8. CLARITIN [Concomitant]
     Dates: start: 20040615
  9. HYDROXYCHLOROQUINE SULFATE [Concomitant]
     Dosage: IN 1982 TO 1992
     Dates: start: 20020601
  10. IMMUNE GLOBULIN (HUMAN) [Concomitant]
  11. NUVELLE [Concomitant]
     Dates: start: 19930601
  12. PROBENECID [Concomitant]
  13. LEVOTHYROXINE SODIUM [Concomitant]
     Dates: start: 19900601
  14. ACYCLOVIR [Concomitant]
  15. METHYLPREDNISOLONE [Concomitant]
     Dates: start: 19990601, end: 20020601

REACTIONS (17)
  - ACUTE RESPIRATORY DISTRESS SYNDROME [None]
  - BONE MARROW TOXICITY [None]
  - CYSTITIS HAEMORRHAGIC [None]
  - GRANULOCYTOSIS [None]
  - HERPES ZOSTER [None]
  - HYPERSENSITIVITY [None]
  - INTESTINAL INFARCTION [None]
  - INTESTINAL OBSTRUCTION [None]
  - NEUTROPENIA [None]
  - PNEUMONIA [None]
  - PROGRESSIVE MULTIFOCAL LEUKOENCEPHALOPATHY [None]
  - RAYNAUD'S PHENOMENON [None]
  - RESPIRATORY FAILURE [None]
  - RESPIRATORY TRACT INFECTION [None]
  - URETERIC OBSTRUCTION [None]
  - VASCULITIS [None]
  - WHITE BLOOD CELL COUNT DECREASED [None]
